FAERS Safety Report 8620237-5 (Version None)
Quarter: 2012Q3

REPORT INFORMATION
  Report Type: 
  Country: None (occurrence: None)
  Receive Date: 20120824
  Receipt Date: 20120816
  Transmission Date: 20120928
  Serious: Yes (Other)
  Sender: FDA-Public Use
  Company Number: PHHY2012JP071750

PATIENT
  Age: 19 Year
  Sex: Male

DRUGS (2)
  1. CYCLOSPORINE [Suspect]
     Indication: ANGIOLYMPHOID HYPERPLASIA WITH EOSINOPHILIA
  2. CORTICOSTEROIDS [Concomitant]
     Indication: ANGIOLYMPHOID HYPERPLASIA WITH EOSINOPHILIA

REACTIONS (2)
  - PAROTID GLAND ENLARGEMENT [None]
  - RENAL FAILURE [None]
